FAERS Safety Report 6737791-0 (Version None)
Quarter: 2010Q2

REPORT INFORMATION
  Report Type: 
  Country: None (occurrence: None)
  Receive Date: 20100520
  Receipt Date: 20100514
  Transmission Date: 20101027
  Serious: Yes (Death)
  Sender: FDA-Public Use
  Company Number: 2010US001667

PATIENT
  Age: 55 Year
  Sex: Female

DRUGS (1)
  1. PROGRAF [Suspect]
     Indication: RENAL TRANSPLANT
     Dosage: 8 MG, UID/QID, ORAL
     Route: 048
     Dates: start: 20080606, end: 20091126

REACTIONS (1)
  - CEREBRAL HAEMORRHAGE [None]
